FAERS Safety Report 8256470-4 (Version None)
Quarter: 2012Q1

REPORT INFORMATION
  Report Type: 
  Country: None (occurrence: None)
  Receive Date: 20120330
  Receipt Date: 20120323
  Transmission Date: 20120608
  Serious: Yes (Other)
  Sender: FDA-Public Use
  Company Number: 2012SP010410

PATIENT
  Age: 72 Year
  Sex: Female

DRUGS (1)
  1. NOXAFIL [Suspect]
     Indication: HAEMATOLOGICAL MALIGNANCY
     Dosage: PO
     Route: 048

REACTIONS (1)
  - SUPRAVENTRICULAR TACHYCARDIA [None]
